FAERS Safety Report 4635613-5 (Version None)
Quarter: 2005Q2

REPORT INFORMATION
  Report Type: 
  Country: None (occurrence: None)
  Receive Date: 20050414
  Receipt Date: 20050310
  Transmission Date: 20051028
  Serious: No
  Sender: FDA-Public Use
  Company Number: 10516

PATIENT
  Age: 10 Year
  Sex: Male

DRUGS (9)
  1. METHOTREXATE [Suspect]
     Indication: JUVENILE ARTHRITIS
     Dosage: 12.5 MG WEEKLY SC
     Route: 058
     Dates: start: 20041203
  2. ETANERCEPT [Suspect]
     Indication: JUVENILE ARTHRITIS
     Dosage: 11.2 MG 2/WK/16.25 MG 2/WK SC
     Route: 058
     Dates: start: 20030917, end: 20041101
  3. ETANERCEPT [Suspect]
     Indication: JUVENILE ARTHRITIS
     Dosage: 11.2 MG 2/WK/16.25 MG 2/WK SC
     Route: 058
     Dates: start: 20041102
  4. CORTICOSTEROID NOS [Suspect]
     Dates: start: 20040721
  5. CODEINE [Concomitant]
  6. DESMOPRESSIN [Concomitant]
  7. PREDNISOLONE [Concomitant]
  8. PIROXICAM [Concomitant]
  9. DIHYDROCODEINE BITARTRATE INJ [Concomitant]

REACTIONS (1)
  - IMPETIGO [None]
